FAERS Safety Report 15825360 (Version 1)
Quarter: 2019Q1

REPORT INFORMATION
  Report Type: Spontaneous
  Country: US (occurrence: US)
  Receive Date: 20190115
  Receipt Date: 20190115
  Transmission Date: 20190417
  Serious: No
  Sender: FDA-Public Use
  Company Number: US-BAYER-2019-008072

PATIENT
  Age: 70 Year
  Sex: Female

DRUGS (1)
  1. CLARITIN [Suspect]
     Active Substance: LORATADINE
     Dosage: UNK UNK, QD

REACTIONS (5)
  - Therapeutic response unexpected [Unknown]
  - Somnolence [Unknown]
  - Sluggishness [Unknown]
  - Weight increased [Unknown]
  - Insomnia [Unknown]
